FAERS Safety Report 7701487-9 (Version None)
Quarter: 2011Q3

REPORT INFORMATION
  Report Type: 
  Country: None (occurrence: None)
  Receive Date: 20110822
  Receipt Date: 20110812
  Transmission Date: 20111222
  Serious: Yes (Hospitalization, Disabling, Other)
  Sender: FDA-Public Use
  Company Number: US-MERCK-1012USA01882

PATIENT
  Age: 59 Year
  Sex: Female

DRUGS (12)
  1. CENTRUM SILVER [Concomitant]
     Route: 048
  2. COREG [Concomitant]
     Route: 065
  3. FOSAMAX [Suspect]
     Indication: OSTEOPOROSIS PROPHYLAXIS
     Route: 048
     Dates: end: 20060604
  4. FOSAMAX [Suspect]
     Indication: OSTEOPENIA
     Route: 048
     Dates: end: 20060604
  5. [THERAPY UNSPECIFIED] [Concomitant]
     Route: 065
  6. FOSAMAX [Suspect]
     Route: 048
     Dates: start: 19990401
  7. FAMOTIDINE [Concomitant]
     Route: 065
  8. TAMOXIFEN CITRATE [Concomitant]
     Route: 065
     Dates: start: 19970101
  9. CENTRUM [Concomitant]
     Route: 048
  10. FOSAMAX [Suspect]
     Route: 048
     Dates: start: 19990401
  11. XANAX [Concomitant]
     Route: 065
  12. ZOLOFT [Concomitant]
     Route: 065

REACTIONS (23)
  - STRESS FRACTURE [None]
  - ANXIETY [None]
  - ATROPHIC VULVOVAGINITIS [None]
  - HYPERTENSION [None]
  - BONE LOSS [None]
  - DENTAL CARIES [None]
  - SINUS DISORDER [None]
  - BLOOD POTASSIUM ABNORMAL [None]
  - HYPERCHOLESTEROLAEMIA [None]
  - VIRAL CARDIOMYOPATHY [None]
  - FEMUR FRACTURE [None]
  - OSTEOPOROSIS [None]
  - FALL [None]
  - HYPERLIPIDAEMIA [None]
  - NERVOUSNESS [None]
  - GINGIVAL DISORDER [None]
  - CARDIAC FAILURE CONGESTIVE [None]
  - LOW TURNOVER OSTEOPATHY [None]
  - FUNGAL INFECTION [None]
  - TOOTH DISORDER [None]
  - HAEMATOCRIT DECREASED [None]
  - HAEMOGLOBIN DECREASED [None]
  - HYPOTHYROIDISM [None]
